FAERS Safety Report 4302338-5 (Version None)
Quarter: 2004Q1

REPORT INFORMATION
  Report Type: 
  Country: None (occurrence: None)
  Receive Date: 20040126
  Receipt Date: 20031010
  Transmission Date: 20041129
  Serious: No
  Sender: FDA-Public Use
  Company Number: USA031049572

PATIENT
  Age: 10 Year
  Sex: Female
  Weight: 34 kg

DRUGS (2)
  1. STRATTERA [Suspect]
     Dosage: 40 MG/DAY
     Dates: start: 20030801
  2. CONCERTA [Concomitant]

REACTIONS (5)
  - ABNORMAL BEHAVIOUR [None]
  - AGITATION [None]
  - ANGER [None]
  - EDUCATIONAL PROBLEM [None]
  - HEADACHE [None]
